FAERS Safety Report 18195710 (Version 1)
Quarter: 2020Q3

REPORT INFORMATION
  Report Type: Spontaneous
  Country: HR (occurrence: HR)
  Receive Date: 20200825
  Receipt Date: 20200825
  Transmission Date: 20201103
  Serious: Yes (Other)
  Sender: FDA-Public Use
  Company Number: NVSC2020HR231544

PATIENT
  Sex: Male

DRUGS (2)
  1. DIAZEPAM. [Suspect]
     Active Substance: DIAZEPAM
     Indication: PRODUCT USED FOR UNKNOWN INDICATION
     Dosage: UNK UNK, QD (ADR WAS ADEQUATELY LABELLED)
     Route: 048
     Dates: start: 202007, end: 202007
  2. AMLOPIN [AMLODIPINE BESILATE] [Suspect]
     Active Substance: AMLODIPINE BESYLATE
     Indication: PRODUCT USED FOR UNKNOWN INDICATION
     Dosage: UNK UNK, QD (ADR WAS ADEQUATELY LABELLED: BLOOD PRESSURE IMMEASURABLE AND NOT LABELLED: COMATOSE)
     Route: 048
     Dates: start: 202007, end: 202007

REACTIONS (4)
  - Blood pressure immeasurable [Unknown]
  - Suicide attempt [Unknown]
  - Coma [Unknown]
  - Intentional overdose [Unknown]

NARRATIVE: CASE EVENT DATE: 202007
